FAERS Safety Report 14912085 (Version 4)
Quarter: 2019Q3

REPORT INFORMATION
  Report Type: Spontaneous
  Country: US (occurrence: US)
  Receive Date: 20180518
  Receipt Date: 20190710
  Transmission Date: 20191004
  Serious: No
  Sender: FDA-Public Use
  Company Number: US-PFIZER INC-2018200927

PATIENT
  Age: 71 Year
  Sex: Female

DRUGS (4)
  1. CECLOR [Suspect]
     Active Substance: CEFACLOR
     Dosage: UNK
  2. CLINDAMYCIN. [Suspect]
     Active Substance: CLINDAMYCIN
     Dosage: UNK
  3. MACRODANTIN [Suspect]
     Active Substance: NITROFURANTOIN
     Dosage: UNK
  4. POTASSIUM [Suspect]
     Active Substance: POTASSIUM
     Dosage: UNK

REACTIONS (6)
  - Abdominal pain [Unknown]
  - Drug hypersensitivity [Unknown]
  - Swelling face [Unknown]
  - Pharyngeal swelling [Unknown]
  - Diarrhoea [Unknown]
  - Rash erythematous [Unknown]
